FAERS Safety Report 20304766 (Version 1)
Quarter: 2022Q1

REPORT INFORMATION
  Report Type: Report from Study
  Country: ES (occurrence: ES)
  Receive Date: 20220106
  Receipt Date: 20220106
  Transmission Date: 20220424
  Serious: Yes (Hospitalization)
  Sender: FDA-Public Use
  Company Number: None

PATIENT
  Age: 69 Year
  Sex: Male

DRUGS (3)
  1. FENTANYL [Interacting]
     Active Substance: FENTANYL
     Indication: Pain
     Dosage: FENTANILO 75 MCG, 50 MCG, 100 MCG, START DATE: ??-???-2020
     Dates: end: 20200318
  2. DIHYDROCODEINE [Interacting]
     Active Substance: DIHYDROCODEINE
     Indication: Pain
     Dosage: 28.7 MILLIGRAM, QD, START DATE: ??-???-2020
     Dates: end: 20200318
  3. NALOXONE HYDROCHLORIDE\OXYCODONE HYDROCHLORIDE [Interacting]
     Active Substance: NALOXONE HYDROCHLORIDE\OXYCODONE HYDROCHLORIDE
     Indication: Pain
     Dosage: 10 MILLIGRAM (10 MG OF OXYCODONE AND EMG OF NALOXONE), START DATE: ??-???-2020
     Dates: end: 20200318

REACTIONS (2)
  - Intestinal pseudo-obstruction [Recovered/Resolved]
  - Drug interaction [Unknown]

NARRATIVE: CASE EVENT DATE: 20200310
